FAERS Safety Report 7126614-6 (Version None)
Quarter: 2010Q4

REPORT INFORMATION
  Report Type: 
  Country: None (occurrence: None)
  Receive Date: 20101129
  Receipt Date: 20101119
  Transmission Date: 20110411
  Serious: Yes (Death, Other)
  Sender: FDA-Public Use
  Company Number: US-BAXTER-2010BH028515

PATIENT
  Age: 63 Year
  Sex: Female

DRUGS (2)
  1. DIANEAL [Suspect]
     Indication: PERITONEAL DIALYSIS
     Route: 033
     Dates: end: 20101115
  2. UNSPECIFIED PAIN MEDICATION [Suspect]
     Indication: PAIN
     Route: 048
     Dates: start: 20100101

REACTIONS (6)
  - ANKLE FRACTURE [None]
  - DEATH [None]
  - DYSPNOEA [None]
  - FALL [None]
  - GASTRIC HAEMORRHAGE [None]
  - MENTAL IMPAIRMENT [None]
